FAERS Safety Report 6760604-8 (Version None)
Quarter: 2010Q2

REPORT INFORMATION
  Report Type: 
  Country: None (occurrence: None)
  Receive Date: 20100608
  Receipt Date: 20100526
  Transmission Date: 20101027
  Serious: Yes (Other)
  Sender: FDA-Public Use
  Company Number: US-PFIZER INC-2010059313

PATIENT
  Sex: Male
  Weight: 90 kg

DRUGS (5)
  1. GABAPENTIN [Suspect]
     Dosage: 50 MG, 2X/DAY
  2. ALLEGRA D 24 HOUR [Concomitant]
     Dosage: UNK
  3. ACETAMINOPHEN W/ CODEINE [Concomitant]
     Dosage: UNK
  4. DIAZEPAM [Concomitant]
     Dosage: UNK
  5. XANAX [Concomitant]
     Dosage: UNK

REACTIONS (9)
  - ANAPHYLACTIC SHOCK [None]
  - BONE DISORDER [None]
  - FOOT DEFORMITY [None]
  - GAIT DISTURBANCE [None]
  - HYPERSENSITIVITY [None]
  - MEMORY IMPAIRMENT [None]
  - VISION BLURRED [None]
  - VISUAL IMPAIRMENT [None]
  - VISUAL PATHWAY DISORDER [None]
